FAERS Safety Report 5100686-2 (Version None)
Quarter: 2006Q3

REPORT INFORMATION
  Report Type: 
  Country: None (occurrence: None)
  Receive Date: 20060906
  Receipt Date: 20060821
  Transmission Date: 20061208
  Serious: Yes (Other)
  Sender: FDA-Public Use
  Company Number: 2006103066

PATIENT
  Age: 35 Year
  Sex: Male
  Weight: 103.8737 kg

DRUGS (4)
  1. SOLU-MEDROL [Suspect]
     Indication: CHEST DISCOMFORT
     Dosage: 125 MG (125 MG,ONCE)
     Dates: start: 20060821
  2. ADVAIR DISKUS 100/50 [Concomitant]
  3. MONTELUKAST [Concomitant]
  4. ALLEGRA [Concomitant]

REACTIONS (4)
  - EAR PRURITUS [None]
  - ERYTHEMA [None]
  - HEART RATE INCREASED [None]
  - MYOCARDIAL INFARCTION [None]
